FAERS Safety Report 4617786-3 (Version None)
Quarter: 2005Q1

REPORT INFORMATION
  Report Type: 
  Country: None (occurrence: None)
  Receive Date: 20050324
  Receipt Date: 20050228
  Transmission Date: 20050727
  Serious: Yes (Other)
  Sender: FDA-Public Use
  Company Number: GB-JNJFOC-20050300710

PATIENT
  Sex: Male
  Weight: 8.1 kg

DRUGS (1)
  1. PEVARYL [Suspect]
     Indication: DERMATITIS DIAPER
     Route: 061

REACTIONS (3)
  - ERYTHEMA [None]
  - PAIN [None]
  - SWELLING [None]
